FAERS Safety Report 7438730-X (Version None)
Quarter: 2011Q2

REPORT INFORMATION
  Report Type: 
  Country: None (occurrence: None)
  Receive Date: 20110426
  Receipt Date: 20110413
  Transmission Date: 20111010
  Serious: Yes (Life-Threatening, Hospitalization)
  Sender: FDA-Public Use
  Company Number: US-CELGENEUS-163-21880-11031469

PATIENT
  Age: 48 Year
  Sex: Female
  Weight: 51.756 kg

DRUGS (9)
  1. METOPROLOL [Concomitant]
     Dosage: 12.5 MILLIGRAM
     Route: 048
  2. PANTOPRAZOLE [Concomitant]
     Dosage: 20 MILLIGRAM
     Route: 048
  3. LOVENOX [Concomitant]
     Route: 065
     Dates: start: 20100901, end: 20110201
  4. LEVOTHYROXINE SODIUM [Concomitant]
     Dosage: 100 MICROGRAM
     Route: 048
  5. HYDROMORPHONE [Concomitant]
     Dosage: 2 MILLIGRAM
     Route: 051
  6. REVLIMID [Suspect]
     Indication: POEMS SYNDROME
     Dosage: 10 MILLIGRAM
     Route: 048
     Dates: start: 20101108
  7. WARFARIN [Concomitant]
     Route: 065
     Dates: start: 20100901, end: 20110201
  8. FLUOXETINE [Concomitant]
     Indication: DEPRESSION
     Dosage: 20 MILLIGRAM
     Route: 048
  9. INSULIN [Concomitant]

REACTIONS (3)
  - POEMS SYNDROME [None]
  - WHITE BLOOD CELL COUNT DECREASED [None]
  - SEPSIS [None]
